FAERS Safety Report 16313530 (Version 1)
Quarter: 2019Q2

REPORT INFORMATION
  Report Type: Spontaneous
  Country: GR (occurrence: GR)
  Receive Date: 20190515
  Receipt Date: 20190515
  Transmission Date: 20190711
  Serious: Yes (Hospitalization, Other)
  Sender: FDA-Public Use
  Company Number: GR-MYLANLABS-2019M1044801

PATIENT
  Age: 83 Year
  Sex: Female

DRUGS (1)
  1. CLOPIDOGREL [Suspect]
     Active Substance: CLOPIDOGREL BISULFATE
     Indication: PRODUCT USED FOR UNKNOWN INDICATION
     Dosage: UNK
     Route: 065

REACTIONS (7)
  - Abdominal pain [Unknown]
  - Ischaemia [Unknown]
  - Thrombosis [Recovering/Resolving]
  - Diarrhoea haemorrhagic [Recovered/Resolved]
  - Asthenia [Unknown]
  - Small intestinal obstruction [Unknown]
  - Syncope [Unknown]
